FAERS Safety Report 19146558 (Version 1)
Quarter: 2021Q2

REPORT INFORMATION
  Report Type: Spontaneous
  Country: ID (occurrence: ID)
  Receive Date: 20210416
  Receipt Date: 20210416
  Transmission Date: 20210717
  Serious: Yes (Life-Threatening, Hospitalization)
  Sender: FDA-Public Use
  Company Number: ID-PFIZER INC-2021346323

PATIENT
  Age: 45 Year
  Sex: Male

DRUGS (1)
  1. REVATIO [Suspect]
     Active Substance: SILDENAFIL CITRATE

REACTIONS (3)
  - Condition aggravated [Recovered/Resolved]
  - Drug intolerance [Unknown]
  - Hyperventilation [Recovered/Resolved]
